FAERS Safety Report 6626364-6 (Version None)
Quarter: 2010Q1

REPORT INFORMATION
  Report Type: 
  Country: None (occurrence: None)
  Receive Date: 20100310
  Receipt Date: 20090930
  Transmission Date: 20100710
  Serious: No
  Sender: FDA-Public Use
  Company Number: US-ABBOTT-09P-163-0600363-00

PATIENT
  Sex: Female
  Weight: 68.554 kg

DRUGS (2)
  1. LUPRON DEPOT [Suspect]
     Indication: MENORRHAGIA
     Route: 030
     Dates: start: 20090908, end: 20090908
  2. IRON [Concomitant]
     Indication: ANAEMIA
     Route: 048

REACTIONS (1)
  - HEADACHE [None]
